FAERS Safety Report 7512444-X (Version None)
Quarter: 2011Q2

REPORT INFORMATION
  Report Type: 
  Country: None (occurrence: None)
  Receive Date: 20110525
  Receipt Date: 20110525
  Transmission Date: 20111010
  Serious: Yes (Other)
  Sender: FDA-Public Use
  Company Number: None

PATIENT
  Age: 61 Year
  Sex: Male
  Weight: 73.4827 kg

DRUGS (1)
  1. MAGNESIUM SULFATE IN DEXTROSE 5% [Suspect]
     Indication: STENT PLACEMENT
     Dosage: 2 G TOTAL DAILY IV, QRM
     Route: 042
     Dates: start: 20110225, end: 20110527

REACTIONS (2)
  - INFUSION SITE HAEMATOMA [None]
  - INFUSION SITE PAIN [None]
